FAERS Safety Report 9101022 (Version 1)
Quarter: 2013Q1

REPORT INFORMATION
  Report Type: Spontaneous
  Country: GB (occurrence: GB)
  Receive Date: 20130215
  Receipt Date: 20130215
  Transmission Date: 20140127
  Serious: Yes (Other)
  Sender: FDA-Public Use
  Company Number: GB-BAXTER-2013BAX005226

PATIENT
  Sex: 0

DRUGS (1)
  1. SUPRANE [Suspect]
     Indication: PRODUCT USED FOR UNKNOWN INDICATION
     Route: 065
     Dates: start: 20130206

REACTIONS (4)
  - Hypotension [Unknown]
  - Anaesthetic complication [Unknown]
  - Haemorrhage [Unknown]
  - Device issue [Unknown]
